FAERS Safety Report 7111791-3 (Version None)
Quarter: 2010Q4

REPORT INFORMATION
  Report Type: 
  Country: None (occurrence: None)
  Receive Date: 20101119
  Receipt Date: 20101101
  Transmission Date: 20110411
  Serious: Yes (Hospitalization)
  Sender: FDA-Public Use
  Company Number: AR-AMGEN-QUU435744

PATIENT

DRUGS (14)
  1. ENBREL [Suspect]
     Indication: RHEUMATOID ARTHRITIS
     Dosage: 25 MG, 2 TIMES/WK
     Route: 058
     Dates: start: 20061110, end: 20100826
  2. METHOTREXATE [Concomitant]
     Dosage: 20 MG, UNK
     Route: 065
  3. METHOTREXATE [Concomitant]
     Dosage: 10/MG/2 TABLETS/WEEKLY EVERY SATURDAY
  4. CALCIUM [Concomitant]
     Dosage: UNK UNK, UNK
  5. CALCIUM [Concomitant]
     Dosage: UNK/MG/TABLETS/TWO TIMES DAILY BY EVENING
  6. ALPRAZOLAM [Concomitant]
     Dosage: UNK UNK, UNK
     Route: 065
  7. ALPRAZOLAM [Concomitant]
     Dosage: UNKNOWN
     Route: 065
  8. OMEPRAZOLE [Concomitant]
     Dosage: 20 MG, QD
  9. FOLIC ACID [Concomitant]
     Dosage: 5 MG, UNK
     Route: 065
  10. FOLIC ACID [Concomitant]
     Dosage: 5/MG/TABLETS/EVERY TUESDAY
  11. FOLIC ACID [Concomitant]
     Dosage: 2 TABLETS/5 MG/DAILY
  12. OXADISTEN [Concomitant]
     Dosage: UNK UNK, UNK
     Route: 065
  13. OXADISTEN [Concomitant]
     Dosage: UNK/TABLETS/WITH BREAKFAST AND LUNCH
     Route: 065
  14. OXADISTEN [Concomitant]
     Dosage: 2 TABLETS/50MG/TWICE DAILY

REACTIONS (8)
  - BACK PAIN [None]
  - BREAST CYST [None]
  - CONDITION AGGRAVATED [None]
  - NODULE [None]
  - PULMONARY FIBROSIS [None]
  - RHEUMATOID ARTHRITIS [None]
  - TUBERCULOSIS [None]
  - WHITE BLOOD CELL COUNT INCREASED [None]
